FAERS Safety Report 18035134 (Version 2)
Quarter: 2020Q3

REPORT INFORMATION
  Report Type: Spontaneous
  Country: US (occurrence: US)
  Receive Date: 20200717
  Receipt Date: 20200814
  Transmission Date: 20201103
  Serious: No
  Sender: FDA-Public Use
  Company Number: US-HTU-2020US020313

PATIENT
  Sex: Male

DRUGS (3)
  1. VALCHLOR [Suspect]
     Active Substance: MECHLORETHAMINE
     Dosage: UNK, 1/WEEK
     Route: 061
     Dates: start: 2019
  2. VALCHLOR [Suspect]
     Active Substance: MECHLORETHAMINE
     Dosage: UNK, 2/WEEK
     Route: 061
  3. VALCHLOR [Suspect]
     Active Substance: MECHLORETHAMINE
     Indication: CUTANEOUS T-CELL LYMPHOMA
     Dosage: UNK, 3/WEEK
     Route: 061

REACTIONS (4)
  - Off label use [Not Recovered/Not Resolved]
  - Application site pruritus [Not Recovered/Not Resolved]
  - Application site irritation [Not Recovered/Not Resolved]
  - Skin tightness [Unknown]
